FAERS Safety Report 5730625-2 (Version None)
Quarter: 2008Q2

REPORT INFORMATION
  Report Type: 
  Country: None (occurrence: None)
  Receive Date: 20080507
  Receipt Date: 20080429
  Transmission Date: 20081010
  Serious: Yes (Disabling)
  Sender: FDA-Public Use
  Company Number: US-SANOFI-SYNTHELABO-A03200801565

PATIENT
  Age: 18 Year
  Sex: Male

DRUGS (1)
  1. AMBIEN [Suspect]
     Indication: INSOMNIA
     Dosage: UNK
     Route: 048

REACTIONS (5)
  - CONFUSIONAL STATE [None]
  - GUN SHOT WOUND [None]
  - HAEMORRHAGE [None]
  - SELF INJURIOUS BEHAVIOUR [None]
  - SOMNAMBULISM [None]
